FAERS Safety Report 4579707-1 (Version None)
Quarter: 2005Q1

REPORT INFORMATION
  Report Type: 
  Country: None (occurrence: None)
  Receive Date: 20050210
  Receipt Date: 20050128
  Transmission Date: 20050727
  Serious: Yes (Death, Hospitalization)
  Sender: FDA-Public Use
  Company Number: S04-USA-07696-01

PATIENT
  Age: 81 Year
  Sex: Female

DRUGS (10)
  1. NAMENDA [Suspect]
     Indication: DEMENTIA ALZHEIMER'S TYPE
     Dosage: 10 MG BID PO
     Route: 048
     Dates: start: 20040101, end: 20040714
  2. NAMENDA [Suspect]
     Indication: DEMENTIA ALZHEIMER'S TYPE
     Dosage: 5 MG QD PO
     Route: 048
     Dates: start: 20040101, end: 20040101
  3. NAMENDA [Suspect]
     Indication: DEMENTIA ALZHEIMER'S TYPE
     Dosage: 5 MG BID PO
     Route: 048
     Dates: start: 20040101, end: 20040101
  4. NAMENDA [Suspect]
     Indication: DEMENTIA ALZHEIMER'S TYPE
     Dosage: 15 MG QD PO
     Route: 048
     Dates: start: 20040101, end: 20040101
  5. MAXZIDE [Concomitant]
  6. LANOXIN [Concomitant]
  7. PREMARIN [Concomitant]
  8. ARICEPT [Concomitant]
  9. PROTONIX [Concomitant]
  10. DYAZIDE [Concomitant]

REACTIONS (36)
  - AGITATION [None]
  - BAND NEUTROPHIL COUNT INCREASED [None]
  - BLOOD CREATININE INCREASED [None]
  - BLOOD PRESSURE SYSTOLIC INCREASED [None]
  - BLOOD UREA INCREASED [None]
  - BLOOD URINE PRESENT [None]
  - CHOLECYSTITIS [None]
  - CHROMATURIA [None]
  - CLOSTRIDIAL INFECTION [None]
  - CONFUSIONAL STATE [None]
  - COUGH [None]
  - DISORIENTATION [None]
  - DYSPHAGIA [None]
  - DYSPNOEA [None]
  - EATING DISORDER [None]
  - FAILURE TO THRIVE [None]
  - FLUID INTAKE REDUCED [None]
  - GAIT DISTURBANCE [None]
  - GENERAL PHYSICAL HEALTH DETERIORATION [None]
  - HAEMATOCRIT DECREASED [None]
  - HAEMOGLOBIN DECREASED [None]
  - LETHARGY [None]
  - MENTAL STATUS CHANGES [None]
  - OEDEMA PERIPHERAL [None]
  - PYREXIA [None]
  - RALES [None]
  - RESPIRATORY DISORDER [None]
  - RESPIRATORY RATE INCREASED [None]
  - RHONCHI [None]
  - SEPSIS [None]
  - SPEECH DISORDER [None]
  - STARING [None]
  - UMBILICAL HERNIA [None]
  - URINARY TRACT INFECTION [None]
  - UROSEPSIS [None]
  - WHITE BLOOD CELLS URINE POSITIVE [None]
